FAERS Safety Report 7514275-3 (Version None)
Quarter: 2011Q2

REPORT INFORMATION
  Report Type: 
  Country: None (occurrence: None)
  Receive Date: 20110601
  Receipt Date: 20110527
  Transmission Date: 20111010
  Serious: Yes (Hospitalization)
  Sender: FDA-Public Use
  Company Number: US-BIOGENIDEC-2011BI018546

PATIENT
  Age: 58 Year
  Sex: Female

DRUGS (2)
  1. AVONEX [Concomitant]
     Indication: MULTIPLE SCLEROSIS
     Route: 030
  2. TYSABRI [Suspect]
     Indication: MULTIPLE SCLEROSIS
     Route: 042
     Dates: start: 20100414, end: 20100824

REACTIONS (5)
  - MULTIPLE SCLEROSIS RELAPSE [None]
  - PAIN [None]
  - DEPRESSION [None]
  - URINARY TRACT INFECTION [None]
  - PNEUMONIA [None]
